FAERS Safety Report 7120221-7 (Version None)
Quarter: 2010Q4

REPORT INFORMATION
  Report Type: 
  Country: None (occurrence: None)
  Receive Date: 20101123
  Receipt Date: 20101014
  Transmission Date: 20110411
  Serious: Yes (Hospitalization)
  Sender: FDA-Public Use
  Company Number: DE-GENENTECH-304894

PATIENT
  Sex: Female
  Weight: 109 kg

DRUGS (13)
  1. RITUXIMAB [Suspect]
     Indication: DIFFUSE LARGE B-CELL LYMPHOMA
     Dosage: 750 MG, Q14D
     Route: 042
     Dates: start: 20100714, end: 20101004
  2. RITUXIMAB [Suspect]
     Dosage: 750 MG, Q14D
     Route: 042
  3. ENDOXAN [Suspect]
     Indication: DIFFUSE LARGE B-CELL LYMPHOMA
     Dosage: 1500 MG, Q14D
     Route: 042
     Dates: start: 20100715, end: 20101005
  4. ENDOXAN [Suspect]
     Dosage: 1500 MG, Q14D
     Route: 042
  5. DOXORUBICIN HCL [Suspect]
     Indication: DIFFUSE LARGE B-CELL LYMPHOMA
     Dosage: 100 MG, Q14D
     Route: 042
     Dates: start: 20100715, end: 20101005
  6. DOXORUBICIN HCL [Suspect]
     Dosage: 100 MG, Q14D
     Route: 042
  7. VINCRISTINE [Suspect]
     Indication: DIFFUSE LARGE B-CELL LYMPHOMA
     Dosage: 2 MG, Q14D
     Route: 042
     Dates: start: 20100707
  8. PREDNISOLONE [Suspect]
     Indication: DIFFUSE LARGE B-CELL LYMPHOMA
     Dosage: 700 MG, UNK
     Route: 048
     Dates: start: 20100707, end: 20100713
  9. PREDNISOLONE [Suspect]
     Dosage: 700 MG, UNK
     Route: 048
     Dates: start: 20100715, end: 20100721
  10. PREDNISOLONE [Suspect]
     Dosage: 700 MG, UNK
     Route: 048
     Dates: start: 20100729, end: 20100804
  11. IMODIUM [Suspect]
     Indication: DIARRHOEA
     Route: 065
  12. HCT [Concomitant]
     Indication: PRODUCT USED FOR UNKNOWN INDICATION
     Dosage: UNK
     Dates: end: 20100719
  13. HYDROCHLOROTHIAZIDE [Concomitant]
     Indication: PRODUCT USED FOR UNKNOWN INDICATION

REACTIONS (4)
  - DIARRHOEA [None]
  - FAECALOMA [None]
  - GASTROENTERITIS [None]
  - URINARY RETENTION [None]
